FAERS Safety Report 5776577-0 (Version None)
Quarter: 2008Q2

REPORT INFORMATION
  Report Type: 
  Country: None (occurrence: None)
  Receive Date: 20080616
  Receipt Date: 20080604
  Transmission Date: 20081010
  Serious: Yes (Hospitalization)
  Sender: FDA-Public Use
  Company Number: 235324J08USA

PATIENT
  Sex: Female
  Weight: 102.0593 kg

DRUGS (2)
  1. REBIF [Suspect]
     Indication: MULTIPLE SCLEROSIS
     Dosage: 44 MCG, 3 IN 1 WEEKS, SUBCUTANEOUS
     Route: 058
     Dates: start: 20040101, end: 20051027
  2. CRANBERRY TABLET (VACCINIUM MACROCARPON) [Concomitant]

REACTIONS (9)
  - BALANCE DISORDER [None]
  - BLOOD MAGNESIUM DECREASED [None]
  - BLOOD POTASSIUM DECREASED [None]
  - CHROMATURIA [None]
  - FATIGUE [None]
  - LIVER DISORDER [None]
  - MOBILITY DECREASED [None]
  - OCULAR ICTERUS [None]
  - YELLOW SKIN [None]
